FAERS Safety Report 24668839 (Version 3)
Quarter: 2025Q3

REPORT INFORMATION
  Report Type: Spontaneous
  Country: JP (occurrence: JP)
  Receive Date: 20241127
  Receipt Date: 20250809
  Transmission Date: 20251020
  Serious: Yes (Disabling, Other)
  Sender: ALEXION PHARMACEUTICALS
  Company Number: JP-ASTRAZENECA-240108534_064320_P_1

PATIENT
  Age: 74 Year
  Sex: Female
  Weight: 37 kg

DRUGS (10)
  1. ANDEXXA [Suspect]
     Active Substance: ANDEXANET ALFA
     Indication: Cerebral haemorrhage
  2. LEVETIRACETAM [Concomitant]
     Active Substance: LEVETIRACETAM
     Indication: Seizure
     Dates: start: 20241006, end: 20241009
  3. PRIMPERAN [Concomitant]
     Active Substance: METOCLOPRAMIDE HYDROCHLORIDE
     Indication: Cerebral haemorrhage
  4. FAMOTIDINE [Concomitant]
     Active Substance: FAMOTIDINE
     Indication: Cerebral haemorrhage
     Dates: start: 20241006, end: 20241008
  5. CEFAZOLIN SODIUM [Concomitant]
     Active Substance: CEFAZOLIN SODIUM
     Indication: Cerebral haemorrhage
     Dates: start: 20241007, end: 20241008
  6. BISOPROLOL [Concomitant]
     Active Substance: BISOPROLOL
     Dates: start: 20241007
  7. PENTAZOCINE [Concomitant]
     Active Substance: PENTAZOCINE
  8. Dormicum [Concomitant]
  9. EDOXABAN TOSYLATE [Concomitant]
     Active Substance: EDOXABAN TOSYLATE
  10. NICARDIPINE HYDROCHLORIDE [Concomitant]
     Active Substance: NICARDIPINE HYDROCHLORIDE
     Indication: Hypertension

REACTIONS (1)
  - Cerebral infarction [Recovered/Resolved with Sequelae]

NARRATIVE: CASE EVENT DATE: 20241008
